FAERS Safety Report 7434512-3 (Version None)
Quarter: 2011Q2

REPORT INFORMATION
  Report Type: 
  Country: None (occurrence: None)
  Receive Date: 20110414
  Receipt Date: 20110210
  Transmission Date: 20111010
  Serious: Yes (Death)
  Sender: FDA-Public Use
  Company Number: UTC-006107

PATIENT
  Age: 53 Year
  Sex: Female

DRUGS (1)
  1. REMODULIN [Suspect]

REACTIONS (11)
  - FATIGUE [None]
  - RESPIRATORY DISTRESS [None]
  - SUPRAVENTRICULAR TACHYCARDIA [None]
  - ABDOMINAL DISTENSION [None]
  - DYSPNOEA [None]
  - HYPOTENSION [None]
  - LOCALISED INFECTION [None]
  - RIGHT VENTRICULAR FAILURE [None]
  - ERYTHEMA [None]
  - INJECTION SITE PAIN [None]
  - INFLAMMATION [None]
